FAERS Safety Report 6673816-9 (Version None)
Quarter: 2010Q2

REPORT INFORMATION
  Report Type: 
  Country: None (occurrence: None)
  Receive Date: 20100407
  Receipt Date: 20100331
  Transmission Date: 20101027
  Serious: Yes (Other)
  Sender: FDA-Public Use
  Company Number: 1000012956

PATIENT
  Age: 41 Year
  Sex: Male

DRUGS (2)
  1. LEXAPRO [Suspect]
     Indication: HOMICIDAL IDEATION
     Dosage: 10 MG (10 MG, 1 IN 1 D), ORAL
     Route: 048
     Dates: start: 20060322, end: 20060401
  2. ATIVAN [Concomitant]

REACTIONS (3)
  - ENERGY INCREASED [None]
  - HOMICIDE [None]
  - INSOMNIA [None]
